FAERS Safety Report 9959663 (Version 1)
Quarter: 2014Q1

REPORT INFORMATION
  Report Type: Spontaneous
  Country: US (occurrence: US)
  Receive Date: 20140305
  Receipt Date: 20140305
  Transmission Date: 20141002
  Serious: No
  Sender: FDA-Public Use
  Company Number: US-ABBVIE-13P-163-1104563-00

PATIENT
  Age: 18 Year
  Sex: Female

DRUGS (2)
  1. HUMIRA [Suspect]
     Indication: CROHN^S DISEASE
  2. CHICKENPOX VACCINE [Concomitant]
     Indication: PROPHYLAXIS

REACTIONS (2)
  - Contraindication to vaccination [Unknown]
  - Medication error [Unknown]
